FAERS Safety Report 4531237-9 (Version None)
Quarter: 2004Q4

REPORT INFORMATION
  Report Type: 
  Country: None (occurrence: None)
  Receive Date: 20041216
  Receipt Date: 20041208
  Transmission Date: 20050328
  Serious: Yes (Hospitalization)
  Sender: FDA-Public Use
  Company Number: J081-232-3668

PATIENT
  Age: 86 Year
  Sex: Male
  Weight: 59.7 kg

DRUGS (5)
  1. DONEPEZIL HCL [Suspect]
     Indication: DEMENTIA ALZHEIMER'S TYPE
     Dosage: 3 MG, 1 IN 1 D, ORAL
     Route: 048
     Dates: start: 20041117, end: 20041207
  2. HARNAL (TAMSULOSIN HYDROCHLORIDE) [Concomitant]
  3. FORSENID (SENNOSIDE A+B) [Concomitant]
  4. DAI-KENCHU-TO (CHINESE HERBAL MEDICINE) [Concomitant]
  5. SEROQUEL [Concomitant]

REACTIONS (4)
  - DEPRESSED LEVEL OF CONSCIOUSNESS [None]
  - INCREASED BRONCHIAL SECRETION [None]
  - INJURY ASPHYXIATION [None]
  - PNEUMONIA ASPIRATION [None]
